FAERS Safety Report 17750507 (Version 1)
Quarter: 2020Q2

REPORT INFORMATION
  Report Type: Spontaneous
  Country: FR (occurrence: FR)
  Receive Date: 20200506
  Receipt Date: 20200506
  Transmission Date: 20200714
  Serious: Yes (Hospitalization)
  Sender: FDA-Public Use
  Company Number: FR-ELI_LILLY_AND_COMPANY-FR202004011263

PATIENT
  Age: 57 Year
  Sex: Female
  Weight: 56 kg

DRUGS (7)
  1. MIANSERINE [MIANSERIN HYDROCHLORIDE] [Concomitant]
     Active Substance: MIANSERIN HYDROCHLORIDE
     Dosage: 30 MG, DAILY
     Route: 065
  2. CALCIDOSE [CALCIUM CARBONATE] [Concomitant]
     Active Substance: CALCIUM CARBONATE
     Route: 065
  3. DULOXETINE [DULOXETINE HYDROCHLORIDE] [Concomitant]
     Active Substance: DULOXETINE HYDROCHLORIDE
     Dosage: 2 DOSAGE FORM, DAILY
     Route: 048
  4. VERZENIO [Suspect]
     Active Substance: ABEMACICLIB
     Indication: BREAST CANCER METASTATIC
     Dosage: 2 DOSAGE FORM, DAILY
     Route: 048
     Dates: start: 201910, end: 20200319
  5. SERESTA [Concomitant]
     Active Substance: OXAZEPAM
     Dosage: UNK UNK, UNKNOWN
     Route: 048
  6. MACROGOL STEARATE [Concomitant]
     Active Substance: POLYETHYLENE GLYCOLS
     Route: 048
  7. LETROZOLE. [Concomitant]
     Active Substance: LETROZOLE
     Dosage: 2.5 MG, DAILY
     Route: 048

REACTIONS (1)
  - Immune thrombocytopenia [Recovered/Resolved]

NARRATIVE: CASE EVENT DATE: 20200318
